FAERS Safety Report 4821448-7 (Version None)
Quarter: 2005Q4

REPORT INFORMATION
  Report Type: 
  Country: None (occurrence: None)
  Receive Date: 20051103
  Receipt Date: 20051024
  Transmission Date: 20060501
  Serious: Yes (Hospitalization)
  Sender: FDA-Public Use
  Company Number: 2005BI018346

PATIENT
  Age: 62 Year
  Sex: Female
  Weight: 79.8331 kg

DRUGS (4)
  1. AVONEX [Suspect]
     Indication: MULTIPLE SCLEROSIS
     Dosage: 30 UG;QW;IM
     Route: 030
     Dates: start: 20010101, end: 20050501
  2. AVONEX [Suspect]
     Indication: MULTIPLE SCLEROSIS
     Dosage: 30 UG;QW;IM
     Route: 030
     Dates: start: 20050501
  3. MECLIZINE [Concomitant]
  4. NAPROXEN [Concomitant]

REACTIONS (8)
  - ASTHENIA [None]
  - DEPRESSION [None]
  - IRON DEFICIENCY [None]
  - NEURALGIA [None]
  - OEDEMA PERIPHERAL [None]
  - RESTLESS LEGS SYNDROME [None]
  - THROMBOSIS [None]
  - THYROID DISORDER [None]
